FAERS Safety Report 7567949-2 (Version None)
Quarter: 2011Q2

REPORT INFORMATION
  Report Type: 
  Country: None (occurrence: None)
  Receive Date: 20110623
  Receipt Date: 20110616
  Transmission Date: 20111010
  Serious: Yes (Hospitalization, Other)
  Sender: FDA-Public Use
  Company Number: CH-BRISTOL-MYERS SQUIBB COMPANY-15838105

PATIENT
  Age: 43 Year
  Sex: Male

DRUGS (4)
  1. VIREAD [Suspect]
     Route: 048
     Dates: end: 20110125
  2. REYATAZ [Suspect]
     Route: 048
     Dates: end: 20110125
  3. VIDEX [Suspect]
     Route: 048
     Dates: end: 20110125
  4. VIRAMUNE [Suspect]
     Route: 048
     Dates: end: 20110125

REACTIONS (5)
  - LIVER DISORDER [None]
  - DRUG PRESCRIBING ERROR [None]
  - PORTAL HYPERTENSION [None]
  - ASCITES [None]
  - HEPATITIS C [None]
